FAERS Safety Report 17888348 (Version 1)
Quarter: 2020Q2

REPORT INFORMATION
  Report Type: Spontaneous
  Country: US (occurrence: US)
  Receive Date: 20200612
  Receipt Date: 20200612
  Transmission Date: 20200714
  Serious: Yes (Other)
  Sender: FDA-Public Use
  Company Number: US-UCBSA-2020022857

PATIENT
  Age: 22 Year
  Sex: Female

DRUGS (4)
  1. LEVETIRACETAM. [Suspect]
     Active Substance: LEVETIRACETAM
     Indication: MYOCLONIC EPILEPSY
     Dosage: 2 GRAM, 2X/DAY (BID)
  2. CLONAZEPAM. [Concomitant]
     Active Substance: CLONAZEPAM
     Indication: MYOCLONIC EPILEPSY
     Dosage: THRICE A DAY FOR A TOTAL DOSE OF 10 MG/DAY
  3. LEVETIRACETAM. [Suspect]
     Active Substance: LEVETIRACETAM
     Dosage: TAPERED
  4. DIVALPROEX SODIUM. [Concomitant]
     Active Substance: DIVALPROEX SODIUM
     Indication: MYOCLONIC EPILEPSY
     Dosage: 1.5 GRAM, 2X/DAY (BID)

REACTIONS (1)
  - Myoclonus [Recovering/Resolving]
